FAERS Safety Report 14828056 (Version 1)
Quarter: 2018Q2

REPORT INFORMATION
  Report Type: Spontaneous
  Country: US (occurrence: US)
  Receive Date: 20180420
  Receipt Date: 20180420
  Transmission Date: 20180711
  Serious: Yes (Other)
  Sender: FDA-Public Use
  Company Number: None

PATIENT
  Age: 17 Year
  Sex: Female

DRUGS (2)
  1. CAMRESE [Suspect]
     Active Substance: ETHINYL ESTRADIOL\LEVONORGESTREL
     Indication: MENORRHAGIA
     Dosage: 0.15-0.03 DAILY BY MOUTH
     Route: 048
     Dates: start: 20180321
  2. CAMRESE [Suspect]
     Active Substance: ETHINYL ESTRADIOL\LEVONORGESTREL
     Indication: MENSTRUATION IRREGULAR
     Dosage: 0.15-0.03 DAILY BY MOUTH
     Route: 048
     Dates: start: 20180321

REACTIONS (4)
  - Muscle spasms [None]
  - Asthenia [None]
  - Product substitution issue [None]
  - Menorrhagia [None]
